FAERS Safety Report 24707279 (Version 1)
Quarter: 2024Q4

REPORT INFORMATION
  Report Type: Spontaneous
  Country: US (occurrence: US)
  Receive Date: 20241206
  Receipt Date: 20241206
  Transmission Date: 20250115
  Serious: No
  Sender: NOVO NORDISK
  Company Number: US-NOVOPROD-1294895

PATIENT

DRUGS (2)
  1. NOVOLIN R [Suspect]
     Active Substance: INSULIN HUMAN
     Indication: Product used for unknown indication
     Dosage: 30 IU IN MORNING
     Route: 058
  2. NOVOLIN R [Suspect]
     Active Substance: INSULIN HUMAN
     Dosage: 20 IU IN NIGHT
     Route: 058

REACTIONS (3)
  - Blood pressure increased [Unknown]
  - Blood glucose increased [Unknown]
  - Drug delivery system malfunction [Unknown]
